FAERS Safety Report 22974938 (Version 2)
Quarter: 2024Q2

REPORT INFORMATION
  Report Type: Report from Study
  Country: US (occurrence: US)
  Receive Date: 20230923
  Receipt Date: 20240403
  Transmission Date: 20240716
  Serious: No
  Sender: FDA-Public Use
  Company Number: US-002147023-NVSC2023US205711

PATIENT
  Sex: Female

DRUGS (2)
  1. ILARIS [Suspect]
     Active Substance: CANAKINUMAB
     Indication: Juvenile idiopathic arthritis
     Dosage: 150 MG (MILLIGRAM) EVERY 6 WEEKS
     Route: 058
     Dates: start: 20210627
  2. ILARIS [Suspect]
     Active Substance: CANAKINUMAB
     Dosage: 150 MG, OTHER (EVERY 4 WEEKS)
     Route: 058

REACTIONS (2)
  - Arthralgia [Unknown]
  - Joint swelling [Unknown]
